FAERS Safety Report 7823219-6 (Version None)
Quarter: 2011Q4

REPORT INFORMATION
  Report Type: 
  Country: None (occurrence: None)
  Receive Date: 20111019
  Receipt Date: 20111014
  Transmission Date: 20120403
  Serious: No
  Sender: FDA-Public Use
  Company Number: US-BIOGENIDEC-2011BI039349

PATIENT
  Sex: Female

DRUGS (2)
  1. TYSABRI [Suspect]
     Indication: MULTIPLE SCLEROSIS
     Route: 042
     Dates: start: 20110614
  2. TYSABRI [Suspect]
     Route: 042
     Dates: start: 20071010, end: 20080922

REACTIONS (3)
  - COUGH [None]
  - PNEUMONIA [None]
  - PRODUCTIVE COUGH [None]
